FAERS Safety Report 12506714 (Version 1)
Quarter: 2016Q2

REPORT INFORMATION
  Report Type: Spontaneous
  Country: GB (occurrence: GB)
  Receive Date: 20160628
  Receipt Date: 20160628
  Transmission Date: 20160815
  Serious: Yes (Hospitalization, Disabling, Other)
  Sender: FDA-Public Use
  Company Number: PHHY2016GB085204

PATIENT
  Age: 49 Year
  Sex: Female
  Weight: 57 kg

DRUGS (5)
  1. FERROUS FUMARATE [Concomitant]
     Active Substance: FERROUS FUMARATE
     Indication: ANAEMIA
     Dosage: 40 MG, BID
     Route: 048
     Dates: start: 201303
  2. ARCOXIA [Concomitant]
     Active Substance: ETORICOXIB
     Indication: ANALGESIC THERAPY
     Route: 065
  3. METHOTREXATE [Suspect]
     Active Substance: METHOTREXATE
     Indication: RHEUMATOID ARTHRITIS
     Route: 048
     Dates: start: 201009, end: 201603
  4. FOLIC ACID. [Concomitant]
     Active Substance: FOLIC ACID
     Indication: PRODUCT USED FOR UNKNOWN INDICATION
     Route: 048
     Dates: start: 201006
  5. ENBREL [Suspect]
     Active Substance: ETANERCEPT
     Indication: RHEUMATOID ARTHRITIS
     Route: 051
     Dates: start: 201402, end: 201603

REACTIONS (7)
  - Lichenoid keratosis [Recovering/Resolving]
  - Scar [Unknown]
  - Skin reaction [Not Recovered/Not Resolved]
  - Skin irritation [Not Recovered/Not Resolved]
  - Rash macular [Not Recovered/Not Resolved]
  - Rash generalised [Not Recovered/Not Resolved]
  - Overdose [Unknown]

NARRATIVE: CASE EVENT DATE: 201509
